FAERS Safety Report 10634927 (Version 2)
Quarter: 2015Q1

REPORT INFORMATION
  Report Type: Report from Study
  Country: PY (occurrence: PY)
  Receive Date: 20141205
  Receipt Date: 20150112
  Transmission Date: 20150720
  Serious: Yes (Other)
  Sender: FDA-Public Use
  Company Number: PHHY2014PY155130

PATIENT
  Sex: Female
  Weight: 63 kg

DRUGS (5)
  1. METOTREXATO//METHOTREXATE [Suspect]
     Active Substance: METHOTREXATE
     Indication: SYSTEMIC LUPUS ERYTHEMATOSUS
     Dosage: 12 MG, Q8H
     Route: 048
  2. UNIGALEN [Suspect]
     Active Substance: ESTRADIOL BENZOATE\HYDROXYPROGESTERONE CAPROATE
     Indication: CONTRACEPTION
     Dosage: 1 DF, QMO
     Route: 065
  3. GLIVEC [Suspect]
     Active Substance: IMATINIB MESYLATE
     Indication: CHRONIC MYELOID LEUKAEMIA
     Dosage: 400 MG, QD
     Route: 048
     Dates: start: 20140604, end: 20141003
  4. HYDROXYCHLOROQUINE [Suspect]
     Active Substance: HYDROXYCHLOROQUINE
     Indication: SYSTEMIC LUPUS ERYTHEMATOSUS
     Dosage: 200 MG, QD
     Route: 048
     Dates: end: 20141003
  5. PREDNISONE. [Concomitant]
     Active Substance: PREDNISONE
     Indication: SYSTEMIC LUPUS ERYTHEMATOSUS
     Dosage: UNK
     Route: 065

REACTIONS (2)
  - Pregnancy with injectable contraceptive [Unknown]
  - Maternal exposure during pregnancy [Unknown]
